FAERS Safety Report 5608667-7 (Version None)
Quarter: 2008Q1

REPORT INFORMATION
  Report Type: 
  Country: None (occurrence: None)
  Receive Date: 20080131
  Receipt Date: 20080118
  Transmission Date: 20080703
  Serious: Yes (Hospitalization, Other)
  Sender: FDA-Public Use
  Company Number: DE-PFIZER INC-2007108372

PATIENT
  Sex: Female
  Weight: 55 kg

DRUGS (4)
  1. LYRICA [Suspect]
     Indication: NEURALGIA
     Dosage: DAILY DOSE:450MG
     Route: 048
  2. FRAXIPARIN [Interacting]
     Indication: DEEP VEIN THROMBOSIS
     Route: 058
  3. MARCUMAR [Interacting]
     Indication: DEEP VEIN THROMBOSIS
     Route: 048
  4. YASMIN [Concomitant]
     Route: 048

REACTIONS (6)
  - DEEP VEIN THROMBOSIS [None]
  - DIZZINESS [None]
  - DRUG INTERACTION [None]
  - FATIGUE [None]
  - INTERNATIONAL NORMALISED RATIO DECREASED [None]
  - SOMNOLENCE [None]
